FAERS Safety Report 6676136-1 (Version None)
Quarter: 2010Q2

REPORT INFORMATION
  Report Type: 
  Country: None (occurrence: None)
  Receive Date: 20100412
  Receipt Date: 20100331
  Transmission Date: 20101027
  Serious: Yes (Hospitalization)
  Sender: FDA-Public Use
  Company Number: FR-PFIZER INC-2010041270

PATIENT
  Age: 59 Year
  Sex: Female

DRUGS (1)
  1. CEFPODOXIME PROXETIL [Suspect]
     Dosage: 100 MG, 2X/DAY
     Route: 048
     Dates: start: 20100112, end: 20100119

REACTIONS (5)
  - DERMATITIS BULLOUS [None]
  - EOSINOPHIL COUNT INCREASED [None]
  - PRURITUS [None]
  - RASH PUSTULAR [None]
  - TOXIC SKIN ERUPTION [None]
